FAERS Safety Report 10928380 (Version 2)
Quarter: 2015Q1

REPORT INFORMATION
  Report Type: Spontaneous
  Country: CO (occurrence: CO)
  Receive Date: 20150319
  Receipt Date: 20150320
  Transmission Date: 20150721
  Serious: Yes (Hospitalization)
  Sender: FDA-Public Use
  Company Number: CO-ROCHE-1544287

PATIENT
  Sex: Male

DRUGS (5)
  1. LUCENTIS [Suspect]
     Active Substance: RANIBIZUMAB
     Indication: DIABETIC RETINAL OEDEMA
     Dosage: 0.5 MG IN 0.05 ML IN THE LEFT EYE
     Route: 050
     Dates: start: 20140820
  2. LUCENTIS [Suspect]
     Active Substance: RANIBIZUMAB
     Dosage: 0.5 MG IN 0.05 ML IN THE LEFT EYE
     Route: 050
     Dates: start: 20150217
  3. LUCENTIS [Suspect]
     Active Substance: RANIBIZUMAB
     Dosage: 0.5 MG IN 0.05 ML IN THE LEFT EYE
     Route: 050
     Dates: start: 20140926
  4. LUCENTIS [Suspect]
     Active Substance: RANIBIZUMAB
     Dosage: 0.5 MG IN 0.05 ML IN THE LEFT EYE
     Route: 050
     Dates: start: 20141023
  5. TOBRAMYCIN. [Concomitant]
     Active Substance: TOBRAMYCIN
     Route: 061

REACTIONS (3)
  - Macular oedema [Unknown]
  - Endophthalmitis [Recovering/Resolving]
  - Arthropathy [Unknown]

NARRATIVE: CASE EVENT DATE: 20150219
